FAERS Safety Report 20096799 (Version 1)
Quarter: 2021Q4

REPORT INFORMATION
  Report Type: Spontaneous
  Country: GB (occurrence: GB)
  Receive Date: 20211122
  Receipt Date: 20211122
  Transmission Date: 20220303
  Serious: Yes (Other)
  Sender: FDA-Public Use
  Company Number: None

PATIENT
  Age: 68 Year
  Sex: Male
  Weight: 72 kg

DRUGS (5)
  1. FREMANEZUMAB [Suspect]
     Active Substance: FREMANEZUMAB
     Indication: Migraine
     Dosage: 225 MG
     Route: 051
     Dates: start: 20201105, end: 20210422
  2. CANDESARTAN [Concomitant]
     Active Substance: CANDESARTAN
     Indication: Ill-defined disorder
  3. MOTILIUM [Concomitant]
     Active Substance: DOMPERIDONE
     Indication: Ill-defined disorder
  4. SUMATRIPTAN SUCCINATE [Concomitant]
     Active Substance: SUMATRIPTAN SUCCINATE
     Indication: Ill-defined disorder
  5. TIMOLOL [Concomitant]
     Active Substance: TIMOLOL
     Indication: Ill-defined disorder

REACTIONS (2)
  - Urticaria [Recovering/Resolving]
  - Rash erythematous [Unknown]

NARRATIVE: CASE EVENT DATE: 20210423
